FAERS Safety Report 5245910-0 (Version None)
Quarter: 2007Q1

REPORT INFORMATION
  Report Type: 
  Country: None (occurrence: None)
  Receive Date: 20070220
  Receipt Date: 20070205
  Transmission Date: 20070707
  Serious: Yes (Hospitalization)
  Sender: FDA-Public Use
  Company Number: 20070043 /

PATIENT
  Age: 29 Year
  Sex: Female

DRUGS (1)
  1. VENOFER [Suspect]
     Indication: IRON DEFICIENCY ANAEMIA
     Dosage: 200MG IV INTRAVENOUS
     Route: 042
     Dates: start: 20061116

REACTIONS (6)
  - COUGH [None]
  - DIARRHOEA [None]
  - DRUG EXPOSURE DURING PREGNANCY [None]
  - PYREXIA [None]
  - TACHYCARDIA [None]
  - VOMITING [None]
